FAERS Safety Report 14991133 (Version 1)
Quarter: 2018Q2

REPORT INFORMATION
  Report Type: Spontaneous
  Country: US (occurrence: US)
  Receive Date: 20180608
  Receipt Date: 20180608
  Transmission Date: 20180711
  Serious: No
  Sender: FDA-Public Use
  Company Number: US-BAYER-2018-103635

PATIENT
  Age: 81 Year
  Sex: Male
  Weight: 80 kg

DRUGS (9)
  1. CLARITIN LIQUI-GELS [Suspect]
     Active Substance: LORATADINE
     Indication: HYPERSENSITIVITY
     Dosage: 2 DF, UNK
     Route: 048
     Dates: start: 20180530, end: 20180530
  2. ZESTRIL [Concomitant]
     Active Substance: LISINOPRIL
  3. FLOMAX [Concomitant]
     Active Substance: TAMSULOSIN HYDROCHLORIDE
  4. COREG [Concomitant]
     Active Substance: CARVEDILOL
  5. CHILDRENS ASPIRIN [Concomitant]
     Active Substance: ASPIRIN
  6. PROZAC [Concomitant]
     Active Substance: FLUOXETINE HYDROCHLORIDE
  7. PROSCAR [Concomitant]
     Active Substance: FINASTERIDE
  8. CLARITIN LIQUI-GELS [Suspect]
     Active Substance: LORATADINE
     Indication: NASOPHARYNGITIS
  9. CRESTOR [Concomitant]
     Active Substance: ROSUVASTATIN CALCIUM

REACTIONS (3)
  - Drug effect delayed [Unknown]
  - Product quality issue [Unknown]
  - Extra dose administered [Unknown]

NARRATIVE: CASE EVENT DATE: 20180530
